FAERS Safety Report 9735078 (Version 1)
Quarter: 2013Q4

REPORT INFORMATION
  Report Type: Spontaneous
  Country: ES (occurrence: None)
  Receive Date: 20131204
  Receipt Date: 20131204
  Transmission Date: 20140711
  Serious: Yes (Other)
  Sender: FDA-Public Use
  Company Number: FK201305118

PATIENT
  Sex: Male

DRUGS (1)
  1. VALPROATE [Suspect]
     Indication: PETIT MAL EPILEPSY
     Dosage: 1200 MG, UNKNOWN, TRANSPLACENTAL
     Route: 064

REACTIONS (21)
  - Hypoglycaemia [None]
  - Drug withdrawal syndrome [None]
  - Hypofibrinogenaemia [None]
  - Foetal exposure during pregnancy [None]
  - Prothrombin level decreased [None]
  - Coagulation factor VII level increased [None]
  - Coagulation factor IX level decreased [None]
  - Coagulation factor X level decreased [None]
  - Coagulation factor XI level decreased [None]
  - Coagulation factor XII level decreased [None]
  - Protein C decreased [None]
  - Caesarean section [None]
  - Crying [None]
  - Tachypnoea [None]
  - Petechiae [None]
  - Ecchymosis [None]
  - Blood pressure decreased [None]
  - Cardiac murmur [None]
  - Activated partial thromboplastin time prolonged [None]
  - Prothrombin time prolonged [None]
  - Catheter site haemorrhage [None]
